FAERS Safety Report 5744118-X (Version None)
Quarter: 2008Q2

REPORT INFORMATION
  Report Type: 
  Country: None (occurrence: None)
  Receive Date: 20080520
  Receipt Date: 20080516
  Transmission Date: 20081010
  Serious: Yes (Hospitalization)
  Sender: FDA-Public Use
  Company Number: B0513762A

PATIENT
  Age: 78 Year
  Sex: Male
  Weight: 79 kg

DRUGS (7)
  1. ARIXTRA [Suspect]
     Indication: KNEE ARTHROPLASTY
     Dosage: 2.5MG PER DAY
     Route: 058
     Dates: start: 20080308, end: 20080315
  2. UNKNOWN DRUG [Concomitant]
     Dosage: 200MG PER DAY
     Route: 048
     Dates: start: 20080308
  3. MUCOSTA [Concomitant]
     Dosage: 200MG PER DAY
     Route: 048
     Dates: start: 20080308
  4. NORVASC [Concomitant]
     Dosage: 5MG PER DAY
     Route: 048
  5. OLMETEC [Concomitant]
     Dosage: 20MG PER DAY
     Route: 048
  6. URINORM [Concomitant]
     Dosage: 50MG PER DAY
     Route: 048
  7. KETAS [Concomitant]
     Dosage: 20MG PER DAY
     Route: 048

REACTIONS (2)
  - POST PROCEDURAL HAEMATOMA [None]
  - SWELLING [None]
